FAERS Safety Report 8349270-8 (Version None)
Quarter: 2012Q2

REPORT INFORMATION
  Report Type: 
  Country: None (occurrence: None)
  Receive Date: 20120510
  Receipt Date: 20120504
  Transmission Date: 20120825
  Serious: No
  Sender: FDA-Public Use
  Company Number: PHHY2012ZA039082

PATIENT
  Sex: Female

DRUGS (5)
  1. PREMARIN [Concomitant]
  2. ZOLPIDEM TARTRATE [Concomitant]
  3. FLUTICASONE PROPIONATE [Concomitant]
  4. NORVASC [Concomitant]
  5. TASIGNA [Suspect]
     Indication: CHRONIC MYELOID LEUKAEMIA
     Dosage: UNK
     Dates: start: 20110101

REACTIONS (1)
  - VASCULAR OCCLUSION [None]
